FAERS Safety Report 16854733 (Version 3)
Quarter: 2022Q2

REPORT INFORMATION
  Report Type: Spontaneous
  Country: JP (occurrence: JP)
  Receive Date: 20190926
  Receipt Date: 20220627
  Transmission Date: 20220721
  Serious: Yes (Other)
  Sender: FDA-Public Use
  Company Number: JP-002147023-PHJP2019JP012205

PATIENT
  Age: 64 Year
  Sex: Female

DRUGS (4)
  1. LUCENTIS [Suspect]
     Active Substance: RANIBIZUMAB
     Indication: Polypoidal choroidal vasculopathy
     Dosage: UNK
     Route: 031
  2. LUCENTIS [Suspect]
     Active Substance: RANIBIZUMAB
     Indication: Age-related macular degeneration
     Dosage: UNK
     Route: 031
  3. AFLIBERCEPT [Concomitant]
     Active Substance: AFLIBERCEPT
     Indication: Polypoidal choroidal vasculopathy
     Route: 031
  4. AFLIBERCEPT [Concomitant]
     Active Substance: AFLIBERCEPT
     Indication: Age-related macular degeneration

REACTIONS (5)
  - Macular fibrosis [Unknown]
  - Vitreous haemorrhage [Unknown]
  - Neovascular age-related macular degeneration [Unknown]
  - Polypoidal choroidal vasculopathy [Unknown]
  - Disease progression [Unknown]
